FAERS Safety Report 11706303 (Version 2)
Quarter: 2015Q4

REPORT INFORMATION
  Report Type: Spontaneous
  Country: US (occurrence: US)
  Receive Date: 20151106
  Receipt Date: 20151119
  Transmission Date: 20160304
  Serious: No
  Sender: FDA-Public Use
  Company Number: US-TAKEDA-2015TUS015491

PATIENT
  Age: 71 Year
  Sex: Female

DRUGS (3)
  1. AMLODIPINE [Concomitant]
     Active Substance: AMLODIPINE BESYLATE
     Indication: HYPERTENSION
     Dosage: UNK, QD
  2. SIMVASTATIN. [Concomitant]
     Active Substance: SIMVASTATIN
     Indication: LIPIDS INCREASED
     Dosage: UNK, QD
  3. DEXILANT [Suspect]
     Active Substance: DEXLANSOPRAZOLE
     Indication: GASTROOESOPHAGEAL REFLUX DISEASE
     Dosage: 60 MG, QD
     Route: 048
     Dates: start: 20150921, end: 20151021

REACTIONS (3)
  - Abdominal distension [Recovered/Resolved]
  - Flatulence [Recovering/Resolving]
  - Abdominal discomfort [Recovered/Resolved]

NARRATIVE: CASE EVENT DATE: 20150921
